FAERS Safety Report 6868933-4 (Version None)
Quarter: 2010Q3

REPORT INFORMATION
  Report Type: 
  Country: None (occurrence: None)
  Receive Date: 20100722
  Receipt Date: 20080725
  Transmission Date: 20110219
  Serious: Yes (Other)
  Sender: FDA-Public Use
  Company Number: US-PFIZER INC-2008049302

PATIENT
  Sex: Female
  Weight: 57.2 kg

DRUGS (4)
  1. CHANTIX [Suspect]
     Indication: SMOKING CESSATION THERAPY
     Route: 048
     Dates: start: 20080603, end: 20080603
  2. BENICAR [Concomitant]
  3. PROTONIX [Concomitant]
  4. LORTAB [Concomitant]

REACTIONS (3)
  - ANXIETY [None]
  - HYPERTENSION [None]
  - NERVOUSNESS [None]
